FAERS Safety Report 11878519 (Version 1)
Quarter: 2015Q4

REPORT INFORMATION
  Report Type: Spontaneous
  Country: US (occurrence: None)
  Receive Date: 20151229
  Receipt Date: 20151229
  Transmission Date: 20160305
  Serious: Yes (Other)
  Sender: FDA-Public Use
  Company Number: None

PATIENT
  Age: 74 Year
  Sex: Female
  Weight: 48.54 kg

DRUGS (10)
  1. LISINOPRIL 10 MG [Suspect]
     Active Substance: LISINOPRIL
     Indication: BLOOD PRESSURE INADEQUATELY CONTROLLED
     Route: 048
     Dates: start: 20151019, end: 20151201
  2. SIMVASTATIN. [Concomitant]
     Active Substance: SIMVASTATIN
  3. ASA [Concomitant]
     Active Substance: ASPIRIN
  4. ZYRTEC [Concomitant]
     Active Substance: CETIRIZINE HYDROCHLORIDE
  5. VITAMIN D [Concomitant]
     Active Substance: CHOLECALCIFEROL
  6. VITAMIN C [Concomitant]
     Active Substance: ASCORBIC ACID
  7. LOSARTAN. [Suspect]
     Active Substance: LOSARTAN
     Indication: THERAPY CHANGE
     Route: 048
     Dates: start: 20151207, end: 20151227
  8. ATENOLOL. [Concomitant]
     Active Substance: ATENOLOL
  9. OMEPRAZOLE. [Concomitant]
     Active Substance: OMEPRAZOLE
  10. CENTRUM SILVER VIT [Concomitant]

REACTIONS (6)
  - Cough [None]
  - Swelling face [None]
  - Eye swelling [None]
  - Insomnia [None]
  - Erythema [None]
  - Upper-airway cough syndrome [None]

NARRATIVE: CASE EVENT DATE: 20151228
